FAERS Safety Report 10238879 (Version 1)
Quarter: 2014Q2

REPORT INFORMATION
  Report Type: Spontaneous
  Country: US (occurrence: None)
  Receive Date: 20140613
  Receipt Date: 20140613
  Transmission Date: 20141212
  Serious: Yes (Death, Life-Threatening, Hospitalization, Disabling)
  Sender: FDA-Public Use
  Company Number: None

PATIENT
  Age: 86 Year
  Sex: Female
  Weight: 53.52 kg

DRUGS (25)
  1. LOVENOX [Suspect]
  2. BI-VENTRICULAR PACEMAKER [Concomitant]
  3. FEXOFENADINE [Concomitant]
  4. RAMIPRIL [Concomitant]
  5. CARVEDILOL [Concomitant]
  6. LASIX [Concomitant]
  7. RESTAS EYE DROPS [Concomitant]
  8. SYNTHROID [Concomitant]
  9. ALPRAZOLAM [Concomitant]
  10. SEROQUEL [Concomitant]
  11. LOVENOX [Concomitant]
  12. OXYCODONE [Concomitant]
  13. CIPRO [Concomitant]
  14. POTASSIUM CHLORIDE [Concomitant]
  15. MAXI VISION OCULAR [Concomitant]
  16. TYLENOL [Concomitant]
  17. FERROUS SULFATE [Concomitant]
  18. FLAX SEED OIL [Concomitant]
  19. VITAMIN B-12 [Concomitant]
  20. VITAMIN C [Concomitant]
  21. CENTRUM MULTIVITAMIN/MULTIMINERAL [Concomitant]
  22. CALTRATE [Concomitant]
  23. CALCUM 600+ D [Concomitant]
  24. GUAIFENESIN [Concomitant]
  25. OMEPRAZOLE [Concomitant]

REACTIONS (2)
  - Intra-abdominal haematoma [None]
  - Haemorrhage [None]
